FAERS Safety Report 19510429 (Version 4)
Quarter: 2021Q4

REPORT INFORMATION
  Report Type: Spontaneous
  Country: US (occurrence: US)
  Receive Date: 20210709
  Receipt Date: 20211229
  Transmission Date: 20220303
  Serious: Yes (Other)
  Sender: FDA-Public Use
  Company Number: US-SA-SAC20210706001030

PATIENT
  Age: 68 Year
  Sex: Male

DRUGS (4)
  1. ZANTAC [Suspect]
     Active Substance: RANITIDINE HYDROCHLORIDE
     Indication: Dyspepsia
     Dosage: 75 MG, QD
     Dates: start: 201907
  2. ZANTAC [Suspect]
     Active Substance: RANITIDINE HYDROCHLORIDE
     Dosage: 150 MG, QD
     Dates: end: 201910
  3. RANITIDINE [Suspect]
     Active Substance: RANITIDINE
     Indication: Dyspepsia
     Dosage: 75 MG, QD
     Dates: start: 201907
  4. RANITIDINE [Suspect]
     Active Substance: RANITIDINE
     Dosage: 150 MG, QD

REACTIONS (2)
  - Prostate cancer [Unknown]
  - Exposure to toxic agent [Unknown]

NARRATIVE: CASE EVENT DATE: 20191201
